FAERS Safety Report 15254100 (Version 2)
Quarter: 2018Q3

REPORT INFORMATION
  Report Type: Report from Study
  Country: GB (occurrence: GB)
  Receive Date: 20180808
  Receipt Date: 20180906
  Transmission Date: 20181010
  Serious: Yes (Other)
  Sender: FDA-Public Use
  Company Number: GB-TEVA-2018-GB-938481

PATIENT
  Age: 39 Year
  Sex: Female

DRUGS (3)
  1. MYCOPHENOLATE MOFETIL. [Concomitant]
     Active Substance: MYCOPHENOLATE MOFETIL
     Indication: BIRDSHOT CHORIORETINOPATHY
     Route: 065
  2. PREDNISOLONE. [Concomitant]
     Active Substance: PREDNISOLONE
     Indication: BIRDSHOT CHORIORETINOPATHY
     Route: 048
  3. TACROLIMUS. [Suspect]
     Active Substance: TACROLIMUS
     Indication: BIRDSHOT CHORIORETINOPATHY
     Dosage: FURTHER INCREASED TO ACHIEVE A SERUM TROUGH LEVEL OF 5?10 NG/ML
     Route: 065

REACTIONS (2)
  - Renal impairment [Recovered/Resolved]
  - Tremor [Unknown]
